FAERS Safety Report 6027253-0 (Version None)
Quarter: 2009Q1

REPORT INFORMATION
  Report Type: 
  Country: None (occurrence: None)
  Receive Date: 20090102
  Receipt Date: 20090102
  Transmission Date: 20090719
  Serious: Yes (Life-Threatening, Hospitalization, Other)
  Sender: FDA-Public Use
  Company Number: None

PATIENT
  Age: 60 Year
  Sex: Male
  Weight: 89.8122 kg

DRUGS (1)
  1. HYDROMORPHONE HCL [Suspect]
     Indication: METASTATIC PAIN
     Dosage: ONE TABLET EVERY 4 HOURS PO
     Route: 048
     Dates: start: 20081121, end: 20081231

REACTIONS (2)
  - DYSPNOEA [None]
  - PRODUCT QUALITY ISSUE [None]
